FAERS Safety Report 23032761 (Version 2)
Quarter: 2023Q4

REPORT INFORMATION
  Report Type: Report from Study
  Country: MX (occurrence: MX)
  Receive Date: 20231005
  Receipt Date: 20231028
  Transmission Date: 20240109
  Serious: Yes (Hospitalization, Other)
  Sender: FDA-Public Use
  Company Number: MX-002147023-NVSC2023MX186872

PATIENT
  Sex: Female

DRUGS (1)
  1. TASIGNA [Suspect]
     Active Substance: NILOTINIB
     Indication: Chronic myeloid leukaemia
     Dosage: 3 DOSAGE FORM, QD
     Route: 048

REACTIONS (18)
  - Platelet count increased [Unknown]
  - Pulmonary oedema [Unknown]
  - Pulmonary thrombosis [Unknown]
  - Leukaemia [Unknown]
  - Cardiac failure [Unknown]
  - Fear [Unknown]
  - Balance disorder [Unknown]
  - Head discomfort [Unknown]
  - Memory impairment [Unknown]
  - Gait disturbance [Unknown]
  - Inflammation [Unknown]
  - Malaise [Unknown]
  - Abdominal pain upper [Unknown]
  - Oedema [Unknown]
  - Bloody discharge [Unknown]
  - Pleural effusion [Unknown]
  - Dyspnoea [Unknown]
  - Product administration error [Unknown]
